FAERS Safety Report 7387108-6 (Version None)
Quarter: 2011Q1

REPORT INFORMATION
  Report Type: 
  Country: None (occurrence: None)
  Receive Date: 20110331
  Receipt Date: 20110324
  Transmission Date: 20110831
  Serious: Yes (Hospitalization)
  Sender: FDA-Public Use
  Company Number: A0773168A

PATIENT
  Age: 71 Year
  Sex: Male
  Weight: 74.1 kg

DRUGS (11)
  1. PREVACID [Concomitant]
  2. AVANDIA [Suspect]
     Indication: DIABETES MELLITUS
     Dosage: 8MG PER DAY
     Route: 048
     Dates: start: 20020719, end: 20080101
  3. METFORMIN HCL [Concomitant]
  4. CRESTOR [Concomitant]
  5. TOPROL-XL [Concomitant]
  6. ALLOPURINOL [Concomitant]
  7. CELEBREX [Concomitant]
  8. PROSCAR [Concomitant]
  9. GLIPIZIDE [Concomitant]
  10. LEXAPRO [Concomitant]
  11. GLUCOTROL [Concomitant]

REACTIONS (6)
  - AORTIC ANEURYSM [None]
  - CORONARY ARTERY DISEASE [None]
  - CARDIAC FAILURE CONGESTIVE [None]
  - MYOCARDIAL INFARCTION [None]
  - ACUTE CORONARY SYNDROME [None]
  - ARRHYTHMIA [None]
